FAERS Safety Report 13177369 (Version 1)
Quarter: 2017Q1

REPORT INFORMATION
  Report Type: Report from Study
  Country: US (occurrence: US)
  Receive Date: 20170201
  Receipt Date: 20170201
  Transmission Date: 20170428
  Serious: No
  Sender: FDA-Public Use
  Company Number: US-EXELIXIS-CABO-16006005

PATIENT
  Age: 65 Year
  Sex: Male

DRUGS (34)
  1. NORCO [Concomitant]
     Active Substance: ACETAMINOPHEN\HYDROCODONE BITARTRATE
  2. FIBERCON [Concomitant]
     Active Substance: CALCIUM POLYCARBOPHIL
  3. LANTUS [Concomitant]
     Active Substance: INSULIN GLARGINE
  4. SPIRIVA [Concomitant]
     Active Substance: TIOTROPIUM BROMIDE MONOHYDRATE
  5. LUTINISOSORBIDE [Concomitant]
  6. SIMVASTATIN. [Concomitant]
     Active Substance: SIMVASTATIN
  7. FISH OIL [Concomitant]
     Active Substance: FISH OIL
  8. COLCRYS [Concomitant]
     Active Substance: COLCHICINE
  9. FENOFIBRATE. [Concomitant]
     Active Substance: FENOFIBRATE
  10. RANITIDINE. [Concomitant]
     Active Substance: RANITIDINE
  11. COMETRIQ [Suspect]
     Active Substance: CABOZANTINIB S-MALATE
     Indication: THYROID CANCER
     Dosage: 140 MG, QD
     Route: 048
     Dates: start: 20160203, end: 201603
  12. NEURONTIN [Concomitant]
     Active Substance: GABAPENTIN
  13. DOXEPIN [Concomitant]
     Active Substance: DOXEPIN
  14. FLOMAX [Concomitant]
     Active Substance: TAMSULOSIN HYDROCHLORIDE
  15. VISION FORMULA [Concomitant]
  16. BUSPIRONE [Concomitant]
     Active Substance: BUSPIRONE HYDROCHLORIDE
  17. ULORIC [Concomitant]
     Active Substance: FEBUXOSTAT
  18. NIFEDIAC CC [Concomitant]
     Active Substance: NIFEDIPINE
  19. TRICOR [Concomitant]
     Active Substance: FENOFIBRATE
  20. ZAFIRLUKAST. [Concomitant]
     Active Substance: ZAFIRLUKAST
  21. TAMSULOSIN [Concomitant]
     Active Substance: TAMSULOSIN
  22. HUMALOG [Concomitant]
     Active Substance: INSULIN LISPRO
  23. TOPROL XL [Concomitant]
     Active Substance: METOPROLOL SUCCINATE
  24. ISOSORBIDE. [Concomitant]
     Active Substance: ISOSORBIDE
  25. BENADRYL [Concomitant]
     Active Substance: DIPHENHYDRAMINE HYDROCHLORIDE
  26. GABAPENTIN. [Concomitant]
     Active Substance: GABAPENTIN
  27. HCTZ [Concomitant]
     Active Substance: HYDROCHLOROTHIAZIDE
  28. CELEXA [Concomitant]
     Active Substance: CITALOPRAM HYDROBROMIDE
  29. ZOCOR [Concomitant]
     Active Substance: SIMVASTATIN
  30. ZANTAC [Concomitant]
     Active Substance: RANITIDINE HYDROCHLORIDE
  31. COMETRIQ [Suspect]
     Active Substance: CABOZANTINIB S-MALATE
     Dosage: 60 MG, QD
     Route: 048
     Dates: start: 201605
  32. GLIMEPIRIDE. [Concomitant]
     Active Substance: GLIMEPIRIDE
  33. VISTARIL [Concomitant]
     Active Substance: HYDROXYZINE PAMOATE
  34. MELATONIN [Concomitant]
     Active Substance: MELATONIN

REACTIONS (10)
  - Pain of skin [Not Recovered/Not Resolved]
  - Weight decreased [Unknown]
  - Gingival pain [Not Recovered/Not Resolved]
  - Glossodynia [Unknown]
  - Dry skin [Unknown]
  - Scab [Unknown]
  - Oral pain [Not Recovered/Not Resolved]
  - Rash generalised [Unknown]
  - Decreased appetite [Unknown]
  - Pruritus [Unknown]

NARRATIVE: CASE EVENT DATE: 201602
